FAERS Safety Report 15146502 (Version 1)
Quarter: 2018Q3

REPORT INFORMATION
  Report Type: Report from Study
  Country: BR (occurrence: BR)
  Receive Date: 20180715
  Receipt Date: 20180715
  Transmission Date: 20181010
  Serious: Yes (Other)
  Sender: FDA-Public Use
  Company Number: PHHY2018BR045089

PATIENT
  Age: 82 Year
  Sex: Female
  Weight: 59 kg

DRUGS (5)
  1. HIGROTON [Suspect]
     Active Substance: CHLORTHALIDONE
     Indication: HYPERTENSION
     Dosage: 25 MG, QD
     Route: 048
  2. HIGROTON [Suspect]
     Active Substance: CHLORTHALIDONE
     Dosage: 0.5 DF (50 MG), UNK
     Route: 048
  3. DIOVAN [Suspect]
     Active Substance: VALSARTAN
     Indication: HYPERTENSION
     Dosage: 80 MG, QD (IN THE MORNING) (STARTED SOME 15 YEARS AGO)
     Route: 048
  4. PROPRANOLOL [Suspect]
     Active Substance: PROPRANOLOL HYDROCHLORIDE
     Indication: HEART RATE ABNORMAL
     Dosage: 2 DF, QD (20 YEARS AGO)
     Route: 048
  5. DIOVAN [Suspect]
     Active Substance: VALSARTAN
     Dosage: 160 MG, QD (IN THE MORNING)
     Route: 048

REACTIONS (8)
  - Impatience [Unknown]
  - Fear [Unknown]
  - Malaise [Unknown]
  - Drug prescribing error [Unknown]
  - Mitral valve stenosis [Unknown]
  - Fatigue [Unknown]
  - Wrong technique in product usage process [Unknown]
  - Anxiety [Unknown]

NARRATIVE: CASE EVENT DATE: 20180606
